FAERS Safety Report 21536636 (Version 2)
Quarter: 2022Q4

REPORT INFORMATION
  Report Type: Spontaneous
  Country: JP (occurrence: JP)
  Receive Date: 20221101
  Receipt Date: 20221116
  Transmission Date: 20230112
  Serious: Yes (Other)
  Sender: FDA-Public Use
  Company Number: JP-TEVA-2022-JP-2821864

PATIENT
  Age: 55 Year
  Sex: Male

DRUGS (8)
  1. ETOPOSIDE [Suspect]
     Active Substance: ETOPOSIDE
     Indication: Acute biphenotypic leukaemia
     Dosage: FOR 1-3 DAYS
     Route: 065
  2. CYTARABINE [Suspect]
     Active Substance: CYTARABINE
     Indication: Acute biphenotypic leukaemia
     Dosage: 4000 MG/M2 DAILY; FOR 1-3 DAYS
     Route: 065
  3. DEXAMETHASONE [Suspect]
     Active Substance: DEXAMETHASONE
     Indication: Acute biphenotypic leukaemia
     Dosage: FOR 1-3 DAYS
     Route: 065
  4. CYCLOPHOSPHAMIDE [Concomitant]
     Active Substance: CYCLOPHOSPHAMIDE
     Indication: Acute biphenotypic leukaemia
     Dosage: FOR 1 DAY
     Route: 065
  5. PREDNISOLONE [Concomitant]
     Active Substance: PREDNISOLONE
     Indication: Acute biphenotypic leukaemia
     Dosage: FOR 1-21 DAYS
     Route: 065
  6. DAUNORUBICIN [Concomitant]
     Active Substance: DAUNORUBICIN
     Indication: Acute biphenotypic leukaemia
     Dosage: FOR 1-3 DAYS
     Route: 065
  7. ASPARAGINASE [Concomitant]
     Active Substance: ASPARAGINASE
     Indication: Acute biphenotypic leukaemia
     Dosage: 3000 U/M2 ON DAY 9, 11, 13, 16, 18 AND 20
     Route: 065
  8. VINCRISTINE [Concomitant]
     Active Substance: VINCRISTINE
     Indication: Acute biphenotypic leukaemia
     Dosage: ON DAY 1, 8, 15, 22
     Route: 065

REACTIONS (2)
  - Septic shock [Unknown]
  - Gastritis bacterial [Unknown]
